FAERS Safety Report 4626586-X (Version None)
Quarter: 2005Q1

REPORT INFORMATION
  Report Type: 
  Country: None (occurrence: None)
  Receive Date: 20050330
  Receipt Date: 20050311
  Transmission Date: 20050727
  Serious: Yes (Death)
  Sender: FDA-Public Use
  Company Number: 2005000536

PATIENT
  Age: 62 Year
  Sex: Male

DRUGS (11)
  1. ERLOTINIB HCL (TABLET) [Suspect]
     Indication: COLORECTAL CANCER METASTATIC
     Dosage: 150 MG (QD), ORAL
     Route: 048
     Dates: start: 20050110, end: 20050222
  2. BEVACIZUMAB (INJECTION FOR INFUSION) [Suspect]
     Indication: COLORECTAL CANCER METASTATIC
     Dosage: 375MG, INTRAVENOUS
     Route: 042
     Dates: start: 20050110, end: 20050209
  3. 5 FLOUROURACIL (FLUOROURACIL) (INJECTION FOR INFUSION) [Suspect]
     Indication: COLORECTAL CANCER METASTATIC
     Dosage: SEE IMAGE
     Route: 042
     Dates: start: 20050110, end: 20050210
  4. 5 FLOUROURACIL (FLUOROURACIL) (INJECTION FOR INFUSION) [Suspect]
     Indication: COLORECTAL CANCER METASTATIC
     Dosage: SEE IMAGE
     Route: 042
     Dates: start: 20040603
  5. OXALIPLATIN (OXALIPLATIN) (INJECTION FOR INFUSION) [Suspect]
     Indication: COLORECTAL CANCER METASTATIC
     Dosage: 167 MG, INTRAVENOUS
     Route: 042
     Dates: start: 20050110, end: 20050209
  6. LEUCOVORIN CALCIUM (CALCIUM FOLINATE) (INJECTION FOR INFUSION) [Suspect]
     Dosage: 392 MG, INTRAVENOUS
     Route: 042
     Dates: start: 20050110, end: 20050210
  7. CLONIDINE [Concomitant]
  8. ALDOMET [Concomitant]
  9. TOPROL-XL [Concomitant]
  10. VERAPAMIL [Concomitant]
  11. WARFARIN SODIUM [Concomitant]

REACTIONS (12)
  - CARDIO-RESPIRATORY ARREST [None]
  - CATHETER RELATED INFECTION [None]
  - CONDITION AGGRAVATED [None]
  - DEHYDRATION [None]
  - DIARRHOEA [None]
  - HAEMATOCRIT DECREASED [None]
  - HAEMORRHAGE [None]
  - INTERNAL INJURY [None]
  - NAUSEA [None]
  - PLATELET COUNT DECREASED [None]
  - VOMITING [None]
  - WOUND DRAINAGE [None]
